FAERS Safety Report 15202507 (Version 2)
Quarter: 2018Q3

REPORT INFORMATION
  Report Type: Spontaneous
  Country: US (occurrence: US)
  Receive Date: 20180726
  Receipt Date: 20180814
  Transmission Date: 20181010
  Serious: No
  Sender: FDA-Public Use
  Company Number: US-009507513-1807USA006717

PATIENT
  Age: 1 Year

DRUGS (2)
  1. STERILE DILUENT (WATER) [Concomitant]
     Active Substance: WATER
     Indication: PROPHYLAXIS
     Dosage: 2 DF, ONCE
     Dates: start: 20180712, end: 20180712
  2. M?M?R II [Suspect]
     Active Substance: MEASLES VIRUS STRAIN ENDERS^ ATTENUATED EDMONSTON LIVE ANTIGEN\MUMPS VIRUS STRAIN B LEVEL JERYL LYNN LIVE ANTIGEN\RUBELLA VIRUS STRAIN WISTAR RA 27/3 LIVE ANTIGEN
     Indication: PROPHYLAXIS
     Dosage: 2 DF
     Route: 058
     Dates: start: 20180712, end: 20180712

REACTIONS (2)
  - No adverse event [Unknown]
  - Incorrect dose administered [Unknown]

NARRATIVE: CASE EVENT DATE: 20180712
